FAERS Safety Report 5085657-7 (Version None)
Quarter: 2006Q3

REPORT INFORMATION
  Report Type: 
  Country: None (occurrence: None)
  Receive Date: 20060822
  Receipt Date: 20060812
  Transmission Date: 20061208
  Serious: Yes (Life-Threatening, Hospitalization)
  Sender: FDA-Public Use
  Company Number: GB-JNJFOC-20060803610

PATIENT
  Age: 48 Year
  Sex: Male

DRUGS (10)
  1. ACETAMINOPHEN [Suspect]
  2. ACETAMINOPHEN [Suspect]
     Indication: DRUG USE FOR UNKNOWN INDICATION
     Dosage: DOSE, DOSAGE FORM, ROUTE, AND FREQUENCY UNKNOWN
  3. METOPROLOL [Interacting]
     Indication: DRUG USE FOR UNKNOWN INDICATION
     Dosage: DOSE, FREQUENCY, AND THERAPY DATE(S) UNKNOWN
  4. PROPOXYPHENE NAPSYLATE [Suspect]
     Indication: DRUG USE FOR UNKNOWN INDICATION
     Dosage: DOSE, FREQUENCY, AND THERAPY DATE(S) UNKNOWN
  5. PROPOXYPHENE NAPSYLATE W/ ACETAMINOPHEN [Suspect]
     Indication: DRUG USE FOR UNKNOWN INDICATION
     Dosage: DOSE, FREQUENCY, AND THERAPY DATE(S) UNKNOWN
  6. AMITRIPTYLINE HCL [Concomitant]
  7. ATORVASTATIN CALCIUM [Concomitant]
  8. DILTIAZEM HCL [Concomitant]
  9. FOSINOPRIL SODIUM [Concomitant]
  10. LEVOTHYROXINE SODIUM [Concomitant]

REACTIONS (3)
  - BRADYCARDIA [None]
  - DRUG INTERACTION [None]
  - HYPOTENSION [None]
